FAERS Safety Report 8810335 (Version 2)
Quarter: 2013Q1

REPORT INFORMATION
  Report Type: Spontaneous
  Country: US (occurrence: US)
  Receive Date: 20120926
  Receipt Date: 20130215
  Transmission Date: 20140127
  Serious: No
  Sender: FDA-Public Use
  Company Number: US-009507513-1209USA005559

PATIENT
  Age: 27 None
  Sex: Female
  Weight: 86.17 kg

DRUGS (4)
  1. IMPLANON [Suspect]
     Indication: CONTRACEPTION
     Dosage: 1 DF, UP TO 3 YRS
     Route: 059
     Dates: start: 20090812
  2. ADVIL [Concomitant]
  3. ULTRAM [Concomitant]
  4. ZOLOFT [Concomitant]

REACTIONS (3)
  - Pain in extremity [Not Recovered/Not Resolved]
  - Incorrect drug administration duration [Unknown]
  - Medical device complication [Unknown]
